FAERS Safety Report 6156131-1 (Version None)
Quarter: 2009Q2

REPORT INFORMATION
  Report Type: 
  Country: None (occurrence: None)
  Receive Date: 20090415
  Receipt Date: 20090407
  Transmission Date: 20091009
  Serious: Yes (Hospitalization, Other)
  Sender: FDA-Public Use
  Company Number: US-ELI_LILLY_AND_COMPANY-US200904001550

PATIENT
  Sex: Female

DRUGS (6)
  1. FORTEO [Suspect]
     Indication: OSTEOPOROSIS
     Dates: start: 20080101
  2. FORTEO [Suspect]
     Dates: start: 20080101
  3. NORVASC [Concomitant]
  4. REQUIP [Concomitant]
  5. OXYBUTYNIN CHLORIDE [Concomitant]
  6. LIPITOR [Concomitant]

REACTIONS (5)
  - CARDIAC PACEMAKER REPLACEMENT [None]
  - PAIN [None]
  - ROAD TRAFFIC ACCIDENT [None]
  - SUBARACHNOID HAEMORRHAGE [None]
  - THROMBOSIS [None]
